FAERS Safety Report 6020882-X (Version None)
Quarter: 2008Q4

REPORT INFORMATION
  Report Type: 
  Country: None (occurrence: None)
  Receive Date: 20081229
  Receipt Date: 20081224
  Transmission Date: 20090506
  Serious: Yes (Life-Threatening)
  Sender: FDA-Public Use
  Company Number: JP-BAYER-200812818BYL

PATIENT
  Age: 77 Year
  Sex: Female

DRUGS (20)
  1. ASPIRIN [Suspect]
     Indication: SUPRAVENTRICULAR TACHYCARDIA
     Dosage: TOTAL DAILY DOSE: 100 MG  UNIT DOSE: 100 MG
     Route: 048
     Dates: start: 20081114, end: 20081118
  2. CEFZON [Suspect]
     Indication: SKIN ULCER
     Dosage: TOTAL DAILY DOSE: 300 MG
     Route: 048
     Dates: start: 20080521, end: 20080918
  3. CEFZON [Suspect]
     Dosage: TOTAL DAILY DOSE: 300 MG
     Route: 048
     Dates: start: 20081021, end: 20081118
  4. AMLODIPINE [Suspect]
     Indication: DRUG USE FOR UNKNOWN INDICATION
     Route: 048
  5. EVISTA [Suspect]
     Indication: DRUG USE FOR UNKNOWN INDICATION
     Route: 048
  6. OPALMON [Suspect]
     Indication: DRUG USE FOR UNKNOWN INDICATION
     Route: 048
  7. TRICHLORMETHIAZIDE [Suspect]
     Indication: DRUG USE FOR UNKNOWN INDICATION
     Route: 048
  8. PURSENNID [Suspect]
     Indication: DRUG USE FOR UNKNOWN INDICATION
     Route: 048
  9. PREDONINE [Suspect]
     Indication: DRUG USE FOR UNKNOWN INDICATION
     Route: 048
  10. MYSLEE [Suspect]
     Indication: DRUG USE FOR UNKNOWN INDICATION
     Route: 048
  11. MUCOSTA [Suspect]
     Indication: DRUG USE FOR UNKNOWN INDICATION
     Route: 048
  12. METHYCOOL [Suspect]
     Indication: DRUG USE FOR UNKNOWN INDICATION
     Route: 048
  13. LANSOPRAZOLE [Suspect]
     Indication: DRUG USE FOR UNKNOWN INDICATION
     Route: 048
  14. OMEPRAL [Suspect]
     Indication: DRUG USE FOR UNKNOWN INDICATION
     Route: 042
  15. VOLTAREN [Suspect]
     Route: 048
  16. NEUROTROPIN [Suspect]
     Route: 048
  17. NEUROVITAN [Suspect]
     Route: 048
  18. NORPACE [Suspect]
     Route: 048
  19. HALFDIGOXIN [Suspect]
     Route: 048
  20. CEFMETAZOLE [Concomitant]
     Indication: CATHETER RELATED INFECTION
     Route: 065
     Dates: start: 20081116

REACTIONS (1)
  - AGRANULOCYTOSIS [None]
